FAERS Safety Report 23343945 (Version 2)
Quarter: 2024Q1

REPORT INFORMATION
  Report Type: Spontaneous
  Country: US (occurrence: US)
  Receive Date: 20231227
  Receipt Date: 20240101
  Transmission Date: 20240410
  Serious: No
  Sender: FDA-Public Use
  Company Number: US-BAUSCHBL-2023BNL013516

PATIENT
  Sex: Female

DRUGS (1)
  1. MIEBO [Suspect]
     Active Substance: PERFLUOROHEXYLOCTANE
     Indication: Product used for unknown indication
     Route: 065

REACTIONS (8)
  - Agitation [Unknown]
  - Anxiety [Unknown]
  - Palpitations [Unknown]
  - Tremor [Unknown]
  - Dizziness [Unknown]
  - Product delivery mechanism issue [Unknown]
  - Accidental exposure to product [Unknown]
  - Exposure via skin contact [Unknown]
